FAERS Safety Report 4423416-6 (Version None)
Quarter: 2004Q3

REPORT INFORMATION
  Report Type: 
  Country: None (occurrence: None)
  Receive Date: 20040713
  Receipt Date: 20040422
  Transmission Date: 20050211
  Serious: No
  Sender: FDA-Public Use
  Company Number: PHEH2004US03155

PATIENT
  Age: 41 Year
  Sex: Male
  Weight: 94.3 kg

DRUGS (2)
  1. ELIDEL [Suspect]
     Dosage: TOPICAL
     Route: 061
  2. ETHANOL(ETHANOL) [Suspect]
     Dosage: ORAL
     Route: 048

REACTIONS (5)
  - ALCOHOL INTERACTION [None]
  - APPLICATION SITE BURNING [None]
  - APPLICATION SITE ERYTHEMA [None]
  - APPLICATION SITE SWELLING [None]
  - RASH [None]
